FAERS Safety Report 21891453 (Version 1)
Quarter: 2023Q1

REPORT INFORMATION
  Report Type: Spontaneous
  Country: TW (occurrence: TW)
  Receive Date: 20230120
  Receipt Date: 20230120
  Transmission Date: 20230418
  Serious: Yes (Other)
  Sender: FDA-Public Use
  Company Number: TW-CHUGAI-2023001008

PATIENT
  Age: 5 Decade
  Sex: Female

DRUGS (3)
  1. ALECENSA [Suspect]
     Active Substance: ALECTINIB HYDROCHLORIDE
     Indication: Product used for unknown indication
     Route: 048
  2. LORLATINIB [Suspect]
     Active Substance: LORLATINIB
     Indication: Product used for unknown indication
     Route: 048
  3. XALKORI [Concomitant]
     Active Substance: CRIZOTINIB
     Dosage: UNKNOWN
     Route: 065

REACTIONS (8)
  - Neoplasm progression [Unknown]
  - Weight increased [Unknown]
  - Blood cholesterol increased [Unknown]
  - Nervous system disorder [Unknown]
  - Quality of life decreased [Unknown]
  - Confusional state [Unknown]
  - Mood altered [Unknown]
  - Blood triglycerides increased [Unknown]
